FAERS Safety Report 14800945 (Version 1)
Quarter: 2018Q2

REPORT INFORMATION
  Report Type: Spontaneous
  Country: GR (occurrence: GR)
  Receive Date: 20180424
  Receipt Date: 20180424
  Transmission Date: 20180711
  Serious: Yes (Other)
  Sender: FDA-Public Use
  Company Number: GR-ROCHE-2105870

PATIENT
  Age: 36 Year
  Sex: Female

DRUGS (2)
  1. OXALIPLATIN. [Suspect]
     Active Substance: OXALIPLATIN
     Indication: COLON CANCER
     Route: 065
  2. CAPECITABINE. [Suspect]
     Active Substance: CAPECITABINE
     Indication: COLON CANCER
     Route: 048

REACTIONS (5)
  - Haematemesis [Unknown]
  - Splenomegaly [Unknown]
  - Hepatic fibrosis [Unknown]
  - Non-cirrhotic portal hypertension [Unknown]
  - Varices oesophageal [Unknown]
